FAERS Safety Report 8989078 (Version 1)
Quarter: 2012Q4

REPORT INFORMATION
  Report Type: 
  Country: IT (occurrence: IT)
  Receive Date: 20121228
  Receipt Date: 20121228
  Transmission Date: 20130627
  Serious: Yes (Other)
  Sender: FDA-Public Use
  Company Number: IT-PFIZER INC-2012329893

PATIENT
  Age: 59 Year
  Sex: Male

DRUGS (2)
  1. AMIODARONE HCL [Suspect]
     Indication: DRUG USE FOR UNKNOWN INDICATION
     Dosage: 1 DF, daily
     Route: 048
     Dates: start: 20111022, end: 20121021
  2. COUMADIN [Concomitant]
     Dosage: UNK

REACTIONS (2)
  - Presyncope [Recovering/Resolving]
  - Supraventricular extrasystoles [Unknown]
